FAERS Safety Report 4300011-0 (Version None)
Quarter: 2004Q1

REPORT INFORMATION
  Report Type: 
  Country: None (occurrence: None)
  Receive Date: 20040218
  Receipt Date: 20040204
  Transmission Date: 20041129
  Serious: Yes (Life-Threatening, Hospitalization)
  Sender: FDA-Public Use
  Company Number: 2003AP04169

PATIENT
  Age: 59 Year
  Sex: Female

DRUGS (8)
  1. ZOMIG [Suspect]
     Indication: HEADACHE
     Dates: start: 20010904
  2. LONGES [Concomitant]
  3. MAINTATE [Concomitant]
  4. DIAZEPAM [Concomitant]
  5. LOXONIN [Concomitant]
  6. STROCAIN [Concomitant]
  7. COLD RELIEF [Concomitant]
  8. CEREKINON [Concomitant]

REACTIONS (14)
  - BASILAR ARTERY OCCLUSION [None]
  - BLOOD PRESSURE INCREASED [None]
  - BRAIN STEM INFARCTION [None]
  - CEREBRAL ARTERY EMBOLISM [None]
  - COMA [None]
  - DIZZINESS [None]
  - DRUG INEFFECTIVE [None]
  - ELECTROCARDIOGRAM T WAVE INVERSION [None]
  - FALL [None]
  - LOCKED-IN SYNDROME [None]
  - MYDRIASIS [None]
  - PERIPHERAL EMBOLISM [None]
  - PUPILLARY REFLEX IMPAIRED [None]
  - TINNITUS [None]
